FAERS Safety Report 13666396 (Version 1)
Quarter: 2017Q2

REPORT INFORMATION
  Report Type: Spontaneous
  Country: US (occurrence: US)
  Receive Date: 20170619
  Receipt Date: 20170619
  Transmission Date: 20170830
  Serious: No
  Sender: FDA-Public Use
  Company Number: US-ROCHE-1427299

PATIENT
  Sex: Female

DRUGS (14)
  1. XELODA [Suspect]
     Active Substance: CAPECITABINE
     Indication: BONE CANCER
     Route: 048
     Dates: start: 20141023
  2. ARMOUR THYROID [Concomitant]
     Active Substance: THYROID, PORCINE
  3. ANASTROZOLE. [Concomitant]
     Active Substance: ANASTROZOLE
  4. XELODA [Suspect]
     Active Substance: CAPECITABINE
     Indication: BREAST CANCER
     Route: 048
     Dates: start: 20140611
  5. IBUPROFEN. [Concomitant]
     Active Substance: IBUPROFEN
  6. PRILOSEC [Concomitant]
     Active Substance: OMEPRAZOLE MAGNESIUM
  7. FENOFIBRATE. [Concomitant]
     Active Substance: FENOFIBRATE
  8. WARFARIN [Concomitant]
     Active Substance: WARFARIN
  9. FISH OIL [Concomitant]
     Active Substance: FISH OIL
  10. IRBESARTAN. [Concomitant]
     Active Substance: IRBESARTAN
  11. ZOFRAN [Concomitant]
     Active Substance: ONDANSETRON HYDROCHLORIDE
  12. TYLENOL [Concomitant]
     Active Substance: ACETAMINOPHEN
  13. CRANBERRY. [Concomitant]
     Active Substance: CRANBERRY
  14. NIASPAN [Concomitant]
     Active Substance: NIACIN

REACTIONS (6)
  - Vomiting [Unknown]
  - Nausea [Unknown]
  - Skin fissures [Unknown]
  - Glossodynia [Unknown]
  - Fatigue [Unknown]
  - Palmar-plantar erythrodysaesthesia syndrome [Unknown]
